FAERS Safety Report 10265450 (Version 1)
Quarter: 2014Q2

REPORT INFORMATION
  Report Type: Spontaneous
  Country: US (occurrence: US)
  Receive Date: 20140627
  Receipt Date: 20140627
  Transmission Date: 20141212
  Serious: Yes (Hospitalization, Other)
  Sender: FDA-Public Use
  Company Number: US-ASTRAZENECA-2014SE45918

PATIENT
  Age: 77 Year
  Sex: Female
  Weight: 67.6 kg

DRUGS (10)
  1. TOPROL-XL [Suspect]
     Indication: LOWN-GANONG-LEVINE SYNDROME
     Route: 048
     Dates: start: 2004, end: 2007
  2. TOPROL-XL [Suspect]
     Indication: HYPERTENSION
     Route: 048
     Dates: start: 2004, end: 2007
  3. METOPROLOL TARTRATE [Suspect]
     Indication: BLOOD PRESSURE ABNORMAL
     Route: 048
     Dates: start: 2007, end: 2009
  4. METOPROLOL TARTRATE [Suspect]
     Indication: BLOOD PRESSURE ABNORMAL
     Route: 048
     Dates: start: 2009, end: 2013
  5. METOPROLOL TARTRATE [Suspect]
     Indication: BLOOD PRESSURE ABNORMAL
     Route: 048
     Dates: start: 2013
  6. SYNTHROID [Concomitant]
     Indication: HYPOTHYROIDISM
  7. VALACYCLOVIR [Concomitant]
     Indication: HERPES ZOSTER
  8. DIOVAN [Concomitant]
     Indication: CARDIAC DISORDER
     Dates: start: 2005
  9. DIOVAN [Concomitant]
     Indication: CARDIAC DISORDER
  10. ATORVASTATIN [Concomitant]
     Indication: BLOOD CHOLESTEROL INCREASED

REACTIONS (8)
  - Herpes zoster [Recovered/Resolved]
  - Lymphocytic leukaemia [Unknown]
  - Blood pressure increased [Unknown]
  - Body height decreased [Unknown]
  - Cardiac disorder [Unknown]
  - Blood pressure abnormal [Not Recovered/Not Resolved]
  - Blood cholesterol increased [Unknown]
  - Drug ineffective [Unknown]
